FAERS Safety Report 12137563 (Version 2)
Quarter: 2016Q2

REPORT INFORMATION
  Report Type: Spontaneous
  Country: FR (occurrence: FR)
  Receive Date: 20160302
  Receipt Date: 20160404
  Transmission Date: 20160815
  Serious: Yes (Hospitalization)
  Sender: FDA-Public Use
  Company Number: FR-JNJFOC-20160214210

PATIENT

DRUGS (1)
  1. XEPLION [Suspect]
     Active Substance: PALIPERIDONE PALMITATE
     Indication: PRODUCT USED FOR UNKNOWN INDICATION
     Route: 030

REACTIONS (4)
  - Psychiatric decompensation [Unknown]
  - Treatment noncompliance [Unknown]
  - Product physical issue [Unknown]
  - Underdose [Unknown]

NARRATIVE: CASE EVENT DATE: 20160213
